FAERS Safety Report 15597617 (Version 1)
Quarter: 2018Q4

REPORT INFORMATION
  Report Type: Spontaneous
  Country: US (occurrence: US)
  Receive Date: 20181108
  Receipt Date: 20181108
  Transmission Date: 20190205
  Serious: Yes (Life-Threatening, Hospitalization, Congenital Anomaly)
  Sender: FDA-Public Use
  Company Number: US-TEVA-2018-US-972717

PATIENT
  Age: 59 Year
  Sex: Female

DRUGS (1)
  1. TENOFOVIR [Suspect]
     Active Substance: TENOFOVIR
     Indication: HIV INFECTION
     Route: 065

REACTIONS (4)
  - Hypokalaemia [Recovered/Resolved]
  - Fanconi syndrome [Recovered/Resolved]
  - Renal tubular acidosis [Recovered/Resolved]
  - Cardiac arrest [Recovered/Resolved]
